FAERS Safety Report 5834416-3 (Version None)
Quarter: 2008Q3

REPORT INFORMATION
  Report Type: 
  Country: None (occurrence: None)
  Receive Date: 20080805
  Receipt Date: 20080728
  Transmission Date: 20090109
  Serious: No
  Sender: FDA-Public Use
  Company Number: US-ASTRAZENECA-2006UW08122

PATIENT
  Age: 46 Year
  Sex: Male
  Weight: 97.5 kg

DRUGS (2)
  1. SEROQUEL [Suspect]
     Indication: DEPRESSION
     Route: 048
     Dates: start: 20000101, end: 20060801
  2. ZYPREXA [Concomitant]

REACTIONS (1)
  - DIABETES MELLITUS [None]
